FAERS Safety Report 12785009 (Version 3)
Quarter: 2016Q4

REPORT INFORMATION
  Report Type: Report from Study
  Country: None (occurrence: US)
  Receive Date: 20160927
  Receipt Date: 20161222
  Transmission Date: 20170207
  Serious: Yes (Hospitalization, Other)
  Sender: FDA-Public Use
  Company Number: US-ABBVIE-16K-163-1735810-00

PATIENT
  Age: 42 Year
  Sex: Male

DRUGS (3)
  1. TESTOSTERONE. [Concomitant]
     Active Substance: TESTOSTERONE
     Indication: PRODUCT USED FOR UNKNOWN INDICATION
  2. HUMIRA [Suspect]
     Active Substance: ADALIMUMAB
     Indication: PSORIASIS
     Route: 058
     Dates: start: 20160523, end: 20160830
  3. HUMIRA [Suspect]
     Active Substance: ADALIMUMAB
     Indication: PSORIATIC ARTHROPATHY

REACTIONS (9)
  - Myocardial infarction [Recovering/Resolving]
  - Dyspnoea [Recovered/Resolved]
  - Allergic oedema [Recovered/Resolved]
  - Cardiac failure [Recovering/Resolving]
  - Hypoaesthesia [Recovering/Resolving]
  - Injection site swelling [Not Recovered/Not Resolved]
  - Coma [Recovered/Resolved]
  - Aphasia [Recovering/Resolving]
  - Abasia [Recovering/Resolving]

NARRATIVE: CASE EVENT DATE: 2016
